FAERS Safety Report 9239981 (Version 1)
Quarter: 2013Q2

REPORT INFORMATION
  Report Type: Spontaneous
  Country: BR (occurrence: BR)
  Receive Date: 20130418
  Receipt Date: 20130418
  Transmission Date: 20140414
  Serious: Yes (Other)
  Sender: FDA-Public Use
  Company Number: BR-GLAXOSMITHKLINE-A1020422A

PATIENT
  Age: 3 Year
  Sex: Female
  Weight: 10 kg

DRUGS (1)
  1. ZINNAT [Suspect]
     Indication: BACTERIAL INFECTION
     Dosage: 125MG TWICE PER DAY
     Route: 048
     Dates: start: 20130330, end: 20130405

REACTIONS (7)
  - Intestinal haemorrhage [Not Recovered/Not Resolved]
  - Diarrhoea [Not Recovered/Not Resolved]
  - Abdominal pain upper [Not Recovered/Not Resolved]
  - Pyrexia [Recovering/Resolving]
  - Rash macular [Not Recovered/Not Resolved]
  - Mucous stools [Not Recovered/Not Resolved]
  - Dengue fever [Unknown]
